FAERS Safety Report 5804479-X (Version None)
Quarter: 2008Q3

REPORT INFORMATION
  Report Type: 
  Country: None (occurrence: None)
  Receive Date: 20080709
  Receipt Date: 20080703
  Transmission Date: 20090109
  Serious: Yes (Hospitalization)
  Sender: FDA-Public Use
  Company Number: B0526523A

PATIENT
  Age: 37 Year
  Sex: Female

DRUGS (4)
  1. VALTREX [Suspect]
     Indication: HERPES ZOSTER OTICUS
     Dosage: 1000MG THREE TIMES PER DAY
     Route: 048
     Dates: start: 20080604, end: 20080606
  2. LOXONIN [Concomitant]
     Indication: HERPES ZOSTER OTICUS
     Dosage: 60MG TWICE PER DAY
     Route: 048
     Dates: start: 20080604, end: 20080606
  3. MUCOSTA [Concomitant]
     Indication: HERPES ZOSTER OTICUS
     Dosage: 100MG TWICE PER DAY
     Route: 048
     Dates: start: 20080604, end: 20080606
  4. CYANOCOBALAMIN [Concomitant]
     Indication: HERPES ZOSTER OTICUS
     Dosage: 500MCG TWICE PER DAY
     Route: 048
     Dates: start: 20080604, end: 20080606

REACTIONS (6)
  - BRAIN OEDEMA [None]
  - DEPRESSED LEVEL OF CONSCIOUSNESS [None]
  - DYSPNOEA [None]
  - ENCEPHALOPATHY [None]
  - GAIT DISTURBANCE [None]
  - MALAISE [None]
